FAERS Safety Report 6626676-6 (Version None)
Quarter: 2010Q1

REPORT INFORMATION
  Report Type: 
  Country: None (occurrence: None)
  Receive Date: 20100308
  Receipt Date: 20100226
  Transmission Date: 20100710
  Serious: Yes (Life-Threatening)
  Sender: FDA-Public Use
  Company Number: VISP-NO-1003S-0097

PATIENT
  Age: 72 Year
  Sex: Female

DRUGS (1)
  1. VISIPAQUE [Suspect]
     Indication: BACK PAIN
     Dosage: 50 ML, SINGLE DOSE, I. A.
     Dates: start: 20070403, end: 20070403

REACTIONS (1)
  - SEPTIC SHOCK [None]
